FAERS Safety Report 8771596 (Version 3)
Quarter: 2013Q3

REPORT INFORMATION
  Report Type: Report from Study
  Country: US (occurrence: US)
  Receive Date: 20120906
  Receipt Date: 20130709
  Transmission Date: 20140515
  Serious: Yes (Hospitalization)
  Sender: FDA-Public Use
  Company Number: US-ACTELION-A-US2012-70738

PATIENT
  Age: 60 Year
  Sex: Female

DRUGS (6)
  1. TRACLEER [Suspect]
     Indication: PULMONARY ARTERIAL HYPERTENSION
     Dosage: UNK
     Route: 048
  2. COUMADIN [Concomitant]
  3. ASPIRIN [Concomitant]
  4. DIGOXIN [Concomitant]
  5. LASIX [Concomitant]
  6. SPIRONOLACTONE [Concomitant]

REACTIONS (3)
  - Cardiac operation [Unknown]
  - Atrial fibrillation [Unknown]
  - Cardiac failure [Unknown]
